FAERS Safety Report 9177126 (Version 1)
Quarter: 2013Q1

REPORT INFORMATION
  Report Type: Spontaneous
  Country: US (occurrence: US)
  Receive Date: 20130321
  Receipt Date: 20130321
  Transmission Date: 20140127
  Serious: Yes (Other)
  Sender: FDA-Public Use
  Company Number: US-JNJFOC-2004009283

PATIENT
  Age: 20 Year
  Sex: Male

DRUGS (3)
  1. IBUPROFEN [Suspect]
     Indication: PAIN
  2. PSEUDOEPHEDRINE [Suspect]
  3. PSEUDOEPHEDRINE [Suspect]
     Indication: SINUS HEADACHE

REACTIONS (6)
  - Renal failure acute [Unknown]
  - Renal papillary necrosis [Unknown]
  - Hydronephrosis [Unknown]
  - Oedema peripheral [Unknown]
  - Nausea [Unknown]
  - Vomiting [Unknown]
